FAERS Safety Report 8418433-5 (Version None)
Quarter: 2012Q2

REPORT INFORMATION
  Report Type: 
  Country: None (occurrence: None)
  Receive Date: 20120607
  Receipt Date: 20120531
  Transmission Date: 20120825
  Serious: Yes (Other)
  Sender: FDA-Public Use
  Company Number: US-PFIZER INC-2012132308

PATIENT

DRUGS (4)
  1. VITAMIN B1 TAB [Concomitant]
     Dosage: UNK
  2. MENTAX [Concomitant]
     Dosage: UNK
  3. LYRICA [Suspect]
     Dosage: UNK
  4. VITAMIN B-12 [Concomitant]
     Dosage: UNK

REACTIONS (3)
  - FEELING ABNORMAL [None]
  - NEUROPATHY PERIPHERAL [None]
  - WALKING AID USER [None]
